FAERS Safety Report 6257003-4 (Version None)
Quarter: 2009Q3

REPORT INFORMATION
  Report Type: 
  Country: None (occurrence: None)
  Receive Date: 20090706
  Receipt Date: 20090629
  Transmission Date: 20100115
  Serious: Yes (Death, Hospitalization)
  Sender: FDA-Public Use
  Company Number: A0777786A

PATIENT
  Age: 11 Year
  Sex: Male

DRUGS (2)
  1. ADVAIR HFA [Suspect]
     Indication: ASTHMA
     Route: 055
     Dates: start: 20031020
  2. SEREVENT [Suspect]
     Indication: ASTHMA
     Route: 055

REACTIONS (7)
  - ASTHMA [None]
  - BRAIN DEATH [None]
  - CARDIAC ARREST [None]
  - HYPOXIA [None]
  - HYPOXIC ENCEPHALOPATHY [None]
  - RESPIRATORY FAILURE [None]
  - STATUS ASTHMATICUS [None]
